FAERS Safety Report 7508743-8 (Version None)
Quarter: 2011Q2

REPORT INFORMATION
  Report Type: 
  Country: None (occurrence: None)
  Receive Date: 20110527
  Receipt Date: 20101201
  Transmission Date: 20111010
  Serious: No
  Sender: FDA-Public Use
  Company Number: A0897231A

PATIENT
  Age: 61 Year
  Sex: Female

DRUGS (2)
  1. VENTOLIN [Suspect]
     Dosage: 2PUFF FOUR TIMES PER DAY
     Route: 055
     Dates: start: 20101129
  2. ANTIBIOTIC [Concomitant]

REACTIONS (1)
  - DRUG INEFFECTIVE [None]
